FAERS Safety Report 15057990 (Version 1)
Quarter: 2018Q2

REPORT INFORMATION
  Report Type: Spontaneous
  Country: IN (occurrence: IN)
  Receive Date: 20180625
  Receipt Date: 20180625
  Transmission Date: 20180711
  Serious: Yes (Other)
  Sender: FDA-Public Use
  Company Number: IN-LUPIN LIMITED-2018-04518

PATIENT
  Age: 61 Year
  Sex: Male

DRUGS (2)
  1. TRIAMCINOLONE [Suspect]
     Active Substance: TRIAMCINOLONE
     Indication: PRODUCT USED FOR UNKNOWN INDICATION
     Dosage: UNK
     Route: 031
  2. DICLOFENAC SODIUM. [Suspect]
     Active Substance: DICLOFENAC SODIUM
     Indication: GLAUCOMA
     Dosage: 450 MG/0.03 ML
     Route: 031

REACTIONS (3)
  - Glaucoma [Recovering/Resolving]
  - Retinal disorder [Recovering/Resolving]
  - Retinal toxicity [Recovering/Resolving]
